FAERS Safety Report 8828950 (Version 1)
Quarter: 2012Q4

REPORT INFORMATION
  Report Type: Spontaneous
  Country: GB (occurrence: None)
  Receive Date: 20121004
  Receipt Date: 20121004
  Transmission Date: 20130627
  Serious: Yes (Hospitalization)
  Sender: FDA-Public Use
  Company Number: GB-DEXPHARM-20121292

PATIENT
  Age: 91 Year
  Sex: Female

DRUGS (8)
  1. OMEPRAZOLE [Suspect]
     Route: 048
     Dates: end: 20120910
  2. DALTEPARIN [Concomitant]
  3. FLUDOCORTISONE [Concomitant]
  4. FOLIC ACID [Concomitant]
  5. LOPERAMIDE [Concomitant]
  6. SANDO-K [Concomitant]
  7. THIAMINE [Concomitant]
  8. VITAMIN B COMPLEX STRONG [Concomitant]

REACTIONS (3)
  - Hypomagnesaemia [None]
  - Atrial fibrillation [None]
  - Fall [None]
